FAERS Safety Report 6142860-2 (Version None)
Quarter: 2009Q2

REPORT INFORMATION
  Report Type: 
  Country: None (occurrence: None)
  Receive Date: 20090403
  Receipt Date: 20090330
  Transmission Date: 20091009
  Serious: Yes (Other)
  Sender: FDA-Public Use
  Company Number: US-AVENTIS-200912526US

PATIENT
  Sex: Female

DRUGS (2)
  1. CARAC [Suspect]
     Dosage: DOSE: APPLY TO ENTIRE NOSE TWICE DAILY
     Route: 061
     Dates: start: 20081001, end: 20081001
  2. DESONIDE [Concomitant]
     Indication: INFLAMMATION
     Dosage: DOSE: UNK
     Dates: start: 20081201

REACTIONS (2)
  - APPLICATION SITE ERYTHEMA [None]
  - BASAL CELL CARCINOMA [None]
